FAERS Safety Report 5388833-9 (Version None)
Quarter: 2007Q3

REPORT INFORMATION
  Report Type: 
  Country: None (occurrence: None)
  Receive Date: 20070716
  Receipt Date: 20070710
  Transmission Date: 20080115
  Serious: Yes (Hospitalization)
  Sender: FDA-Public Use
  Company Number: IT-SHR-IT-2007-025584

PATIENT
  Age: 80 Year
  Sex: Male

DRUGS (1)
  1. ULTRAVIST 370 [Suspect]
     Dosage: 130 ML, 1 DOSE
     Route: 040
     Dates: start: 20070706, end: 20070706

REACTIONS (3)
  - INCONTINENCE [None]
  - LOSS OF CONSCIOUSNESS [None]
  - MUSCLE DISORDER [None]
